FAERS Safety Report 17045814 (Version 1)
Quarter: 2019Q4

REPORT INFORMATION
  Report Type: Report from Study
  Country: None (occurrence: US)
  Receive Date: 20191118
  Receipt Date: 20191118
  Transmission Date: 20200122
  Serious: Yes (Hospitalization, Other)
  Sender: FDA-Public Use
  Company Number: US-ABBVIE-19K-163-2963406-00

PATIENT
  Age: 78 Year
  Sex: Male

DRUGS (2)
  1. VENCLEXTA [Suspect]
     Active Substance: VENETOCLAX
     Indication: CHRONIC LYMPHOCYTIC LEUKAEMIA
     Route: 048
     Dates: start: 20190920, end: 20191111
  2. RITUXAN [Concomitant]
     Active Substance: RITUXIMAB
     Indication: CHRONIC LYMPHOCYTIC LEUKAEMIA

REACTIONS (8)
  - Decreased appetite [Not Recovered/Not Resolved]
  - Incontinence [Unknown]
  - Platelet count decreased [Unknown]
  - Malaise [Unknown]
  - Weight decreased [Recovering/Resolving]
  - Haemoglobin decreased [Unknown]
  - Large intestine perforation [Unknown]
  - Haematochezia [Unknown]

NARRATIVE: CASE EVENT DATE: 2019
